FAERS Safety Report 8196186-6 (Version None)
Quarter: 2012Q1

REPORT INFORMATION
  Report Type: 
  Country: None (occurrence: None)
  Receive Date: 20120307
  Receipt Date: 20120307
  Transmission Date: 20120608
  Serious: No
  Sender: FDA-Public Use
  Company Number: None

PATIENT
  Age: 46 Year
  Sex: Male

DRUGS (1)
  1. LISINOPRIL [Suspect]
     Dates: start: 20071015, end: 20080104

REACTIONS (17)
  - FATIGUE [None]
  - HYPOTENSION [None]
  - DIARRHOEA [None]
  - GASTROINTESTINAL HAEMORRHAGE [None]
  - WEIGHT DECREASED [None]
  - FLUID RETENTION [None]
  - RASH [None]
  - INSOMNIA [None]
  - TREMOR [None]
  - ALANINE AMINOTRANSFERASE INCREASED [None]
  - SELF-MEDICATION [None]
  - RHINITIS [None]
  - NASOPHARYNGITIS [None]
  - LIVER INJURY [None]
  - HEPATIC ENCEPHALOPATHY [None]
  - JAUNDICE [None]
  - TOXICITY TO VARIOUS AGENTS [None]
